FAERS Safety Report 26018860 (Version 1)
Quarter: 2025Q4

REPORT INFORMATION
  Report Type: Spontaneous
  Country: US (occurrence: US)
  Receive Date: 20251110
  Receipt Date: 20251110
  Transmission Date: 20260117
  Serious: Yes (Other)
  Sender: CURRAX PHARMACEUTICALS
  Company Number: US-NALPROPION PHARMACEUTICALS INC.-US-2024CUR005258

PATIENT
  Sex: Female

DRUGS (1)
  1. CONTRAVE [Suspect]
     Active Substance: BUPROPION HYDROCHLORIDE\NALTREXONE HYDROCHLORIDE
     Indication: Weight control
     Dosage: STRENGTH 8/90 MG, ONE PILL PER DAY
     Route: 065
     Dates: start: 20241222, end: 20241222

REACTIONS (8)
  - Urticaria [Unknown]
  - Pruritus [Recovering/Resolving]
  - Illness [Unknown]
  - Nausea [Not Recovered/Not Resolved]
  - Vomiting [Unknown]
  - Feeling abnormal [Unknown]
  - Reaction to excipient [Unknown]
  - Contraindicated product administered [Unknown]

NARRATIVE: CASE EVENT DATE: 20241201
